FAERS Safety Report 21829407 (Version 5)
Quarter: 2025Q2

REPORT INFORMATION
  Report Type: Report from Study
  Country: FR (occurrence: FR)
  Receive Date: 20230106
  Receipt Date: 20250404
  Transmission Date: 20250716
  Serious: No
  Sender: RANBAXY
  Company Number: FR-SUN PHARMACEUTICAL INDUSTRIES LTD-2022RR-368455

PATIENT
  Sex: Female
  Weight: 110 kg

DRUGS (5)
  1. TILDRAKIZUMAB [Suspect]
     Active Substance: TILDRAKIZUMAB
     Indication: Product used for unknown indication
     Route: 058
     Dates: start: 20220317
  2. TILDRAKIZUMAB [Suspect]
     Active Substance: TILDRAKIZUMAB
     Route: 058
     Dates: start: 20220415
  3. TILDRAKIZUMAB [Suspect]
     Active Substance: TILDRAKIZUMAB
     Route: 058
     Dates: start: 20220715
  4. TILDRAKIZUMAB [Suspect]
     Active Substance: TILDRAKIZUMAB
     Route: 058
     Dates: start: 20221012
  5. CLOBEX [Concomitant]
     Active Substance: CLOBETASOL PROPIONATE
     Indication: Psoriasis
     Route: 061
     Dates: start: 20221019, end: 20221102

REACTIONS (1)
  - Hepatic cytolysis [Recovered/Resolved with Sequelae]

NARRATIVE: CASE EVENT DATE: 20220607
